FAERS Safety Report 4867312-9 (Version None)
Quarter: 2005Q4

REPORT INFORMATION
  Report Type: 
  Country: None (occurrence: None)
  Receive Date: 20051228
  Receipt Date: 20051219
  Transmission Date: 20060501
  Serious: Yes (Life-Threatening)
  Sender: FDA-Public Use
  Company Number: AU-ROCHE-429043

PATIENT
  Age: 65 Year
  Sex: Male

DRUGS (4)
  1. CEFTRIAXONE [Suspect]
     Dosage: INDICATION REPORTED AS OTHER AND NOS INFECTION AND PARASIT DISEASES.
     Route: 065
  2. MAREVAN [Concomitant]
  3. FERRO-GRADUMET [Concomitant]
  4. ACCUPRIL [Concomitant]

REACTIONS (4)
  - BLOOD PRESSURE INCREASED [None]
  - CHILLS [None]
  - RESPIRATORY DISORDER [None]
  - RESPIRATORY DISTRESS [None]
